FAERS Safety Report 5068992-8 (Version None)
Quarter: 2006Q3

REPORT INFORMATION
  Report Type: 
  Country: None (occurrence: None)
  Receive Date: 20060802
  Receipt Date: 20060727
  Transmission Date: 20061208
  Serious: Yes (Hospitalization)
  Sender: FDA-Public Use
  Company Number: VE-BOEHRINGER INGELHEIM PHARMACEUTICALS, INC.-2006-BP-08645VB

PATIENT
  Sex: Male
  Weight: 80 kg

DRUGS (1)
  1. MICARDIS HCT [Suspect]
     Indication: HYPERTENSION
     Dosage: 80MG/12.5MG
     Route: 048
     Dates: start: 20060526

REACTIONS (2)
  - DIARRHOEA [None]
  - HYPERTENSIVE CRISIS [None]
